FAERS Safety Report 8531143-9 (Version None)
Quarter: 2012Q3

REPORT INFORMATION
  Report Type: 
  Country: None (occurrence: None)
  Receive Date: 20120710
  Receipt Date: 20120626
  Transmission Date: 20120928
  Serious: Yes (Other)
  Sender: FDA-Public Use
  Company Number: 2011MA002708

PATIENT
  Sex: Male

DRUGS (14)
  1. FUROSEMIDE [Concomitant]
  2. PREDNISOLONE [Concomitant]
  3. CIPROFLOXACIN [Concomitant]
  4. ALBUTEROL [Concomitant]
  5. APAP W/ CODEINE [Concomitant]
  6. LANSOPRAZOLE/SODIUM BICARBONATE [Concomitant]
  7. PREVACID [Concomitant]
  8. CEPHALEXIN [Concomitant]
  9. ALBUTEROL [Concomitant]
  10. AMOXICILLIN [Concomitant]
  11. CEFPROZIL [Concomitant]
  12. METOCLOPRAMIDE [Suspect]
     Dosage: 5 MG/5ML;PO
     Route: 048
     Dates: start: 20050616, end: 20100801
  13. PULMICORT [Concomitant]
  14. BUDESONIDE [Concomitant]

REACTIONS (8)
  - TREMOR [None]
  - ECONOMIC PROBLEM [None]
  - INJURY [None]
  - EXTRAPYRAMIDAL DISORDER [None]
  - EMOTIONAL DISORDER [None]
  - DYSTONIA [None]
  - AKATHISIA [None]
  - TARDIVE DYSKINESIA [None]
